FAERS Safety Report 6582615-8 (Version None)
Quarter: 2010Q1

REPORT INFORMATION
  Report Type: 
  Country: None (occurrence: None)
  Receive Date: 20100212
  Receipt Date: 20100212
  Transmission Date: 20100710
  Serious: No
  Sender: FDA-Public Use
  Company Number: None

PATIENT
  Age: 75 Year
  Sex: Male
  Weight: 61.2 kg

DRUGS (2)
  1. HEPARIN [Suspect]
     Indication: CEREBROVASCULAR ACCIDENT PROPHYLAXIS
     Dosage: 5000 UNITS OTHER SQ
     Route: 058
     Dates: start: 20090918, end: 20090924
  2. PHENYTOIN [Suspect]
     Indication: CONVULSION
     Dosage: 230 MG HS PO
     Route: 048
     Dates: start: 20090918, end: 20090923

REACTIONS (5)
  - ERYTHEMA MULTIFORME [None]
  - INJECTION SITE NECROSIS [None]
  - PURPURA [None]
  - RASH MORBILLIFORM [None]
  - THROMBOCYTOPENIA [None]
